FAERS Safety Report 19105288 (Version 10)
Quarter: 2022Q4

REPORT INFORMATION
  Report Type: Report from Study
  Country: US (occurrence: US)
  Receive Date: 20210407
  Receipt Date: 20221019
  Transmission Date: 20230113
  Serious: Yes (Death, Hospitalization)
  Sender: FDA-Public Use
  Company Number: US-NOVARTISTESTPH-NVSC2021US075882

PATIENT
  Age: 67 Year
  Sex: Male
  Weight: 108.86 kg

DRUGS (10)
  1. TREPROSTINIL [Suspect]
     Active Substance: TREPROSTINIL
     Indication: Pulmonary arterial hypertension
     Dosage: 39 NG/KG/MIN, CONT (STRENGTH: 2.5 MG/ML)
     Route: 042
     Dates: start: 20210121
  2. TREPROSTINIL [Suspect]
     Active Substance: TREPROSTINIL
     Dosage: 96 NG/KG/MIN, CONT (STRENGTH: 5 MG/ML)
     Route: 042
  3. TREPROSTINIL [Suspect]
     Active Substance: TREPROSTINIL
     Dosage: 102 NG/KG/MIN, CONT (STRENGTH: 5 MG/ML)
     Route: 042
  4. TREPROSTINIL [Suspect]
     Active Substance: TREPROSTINIL
     Dosage: 90 NG/KG/MIN, CONT (STRENGTH: 5 MG/ML)
     Route: 042
  5. TREPROSTINIL [Suspect]
     Active Substance: TREPROSTINIL
     Dosage: 92 NG/KG/MIN, CONT (STRENGTH:1 MG/ML)
     Route: 042
  6. TREPROSTINIL [Suspect]
     Active Substance: TREPROSTINIL
     Dosage: 92 NG/KG/MIN, CONT (STRENGTH: 5 MG/ML)
     Route: 042
  7. ADEMPAS [Concomitant]
     Active Substance: RIOCIGUAT
     Indication: Product used for unknown indication
     Dosage: UNK
     Route: 065
  8. OPSUMIT [Concomitant]
     Active Substance: MACITENTAN
     Indication: Product used for unknown indication
     Dosage: UNK
     Route: 065
  9. AMBRISENTAN [Concomitant]
     Active Substance: AMBRISENTAN
     Indication: Product used for unknown indication
     Dosage: UNK
     Route: 065
  10. REMODULIN [Concomitant]
     Active Substance: TREPROSTINIL
     Indication: Product used for unknown indication
     Dosage: UNK
     Route: 065

REACTIONS (10)
  - Death [Fatal]
  - Hypoxia [Unknown]
  - Dyspnoea [Unknown]
  - Hypotension [Unknown]
  - Pyrexia [Unknown]
  - Hypophagia [Unknown]
  - Gastrooesophageal reflux disease [Unknown]
  - Weight decreased [Unknown]
  - Diarrhoea [Unknown]
  - Catheter site erythema [Unknown]

NARRATIVE: CASE EVENT DATE: 20221011
